FAERS Safety Report 11259467 (Version 1)
Quarter: 2015Q3

REPORT INFORMATION
  Report Type: Spontaneous
  Country: US (occurrence: US)
  Receive Date: 20150710
  Receipt Date: 20150710
  Transmission Date: 20151125
  Serious: Yes (Other)
  Sender: FDA-Public Use
  Company Number: US-PFIZER INC-2015225918

PATIENT
  Age: 54 Year
  Sex: Female
  Weight: 46.71 kg

DRUGS (1)
  1. IBRANCE [Suspect]
     Active Substance: PALBOCICLIB
     Indication: BREAST NEOPLASM
     Dosage: 100 MG, CYCLIC (D1-D21-Q28D )
     Route: 048
     Dates: start: 20150615

REACTIONS (3)
  - Dizziness [Unknown]
  - Stomatitis [Unknown]
  - Dyspnoea [Unknown]
